FAERS Safety Report 10355126 (Version 2)
Quarter: 2014Q4

REPORT INFORMATION
  Report Type: Spontaneous
  Country: JP (occurrence: JP)
  Receive Date: 20140731
  Receipt Date: 20141119
  Transmission Date: 20150528
  Serious: Yes (Death)
  Sender: FDA-Public Use
  Company Number: PHHY2012JP133313

PATIENT
  Age: 84 Year
  Sex: Male

DRUGS (5)
  1. EXJADE [Suspect]
     Active Substance: DEFERASIROX
     Indication: IRON OVERLOAD
     Dosage: 1000 MG, DAILLY
     Dates: start: 20091001
  2. EXJADE [Suspect]
     Active Substance: DEFERASIROX
     Dosage: 250 MG, PER DAY
  3. EXJADE [Suspect]
     Active Substance: DEFERASIROX
     Dosage: 500 MG, UNK
  4. EXJADE [Suspect]
     Active Substance: DEFERASIROX
     Dosage: 1000 MG, UNK
  5. EXJADE [Suspect]
     Active Substance: DEFERASIROX
     Dosage: 500 MG, UNK (ON ALTERNATE DAYS)

REACTIONS (4)
  - Renal impairment [Not Recovered/Not Resolved]
  - Disease progression [Fatal]
  - Blood creatinine increased [Recovering/Resolving]
  - Condition aggravated [Not Recovered/Not Resolved]

NARRATIVE: CASE EVENT DATE: 20091101
